FAERS Safety Report 6399026-0 (Version None)
Quarter: 2009Q4

REPORT INFORMATION
  Report Type: 
  Country: None (occurrence: None)
  Receive Date: 20091008
  Receipt Date: 20091008
  Transmission Date: 20100525
  Serious: Yes (Other)
  Sender: FDA-Public Use
  Company Number: None

PATIENT
  Age: 53 Year
  Sex: Male
  Weight: 72.6 kg

DRUGS (20)
  1. ZOLPIDEM [Suspect]
     Indication: INSOMNIA
     Dates: start: 20091003, end: 20091003
  2. PHOS-NAK [Concomitant]
  3. TACROLIMUS [Concomitant]
  4. ITRACONAZOLE [Concomitant]
  5. LEVOFLOXACIN [Concomitant]
  6. ESOMEPRAZOLE [Concomitant]
  7. INSULIN ASPART [Concomitant]
  8. MAGNESIUM OXIDE [Concomitant]
  9. CALCIUM W/VITD [Concomitant]
  10. ADVAIR DISKUS 100/50 [Concomitant]
  11. AZITHROMYCIN [Concomitant]
  12. ALENDRONATE SODIUM [Concomitant]
  13. SIMVASTATIN [Concomitant]
  14. BACTRIM DS [Concomitant]
  15. ACYCLOVIR [Concomitant]
  16. PREDNISONE [Concomitant]
  17. PROPRANOLOL [Concomitant]
  18. ONDANSETRON [Concomitant]
  19. SUMATRIPTAN [Concomitant]
  20. CEFEPIME [Concomitant]

REACTIONS (2)
  - ABNORMAL SLEEP-RELATED EVENT [None]
  - SOMNAMBULISM [None]
